FAERS Safety Report 5347049-2 (Version None)
Quarter: 2007Q2

REPORT INFORMATION
  Report Type: 
  Country: None (occurrence: None)
  Receive Date: 20070604
  Receipt Date: 20070524
  Transmission Date: 20071010
  Serious: Yes (Other)
  Sender: FDA-Public Use
  Company Number: CHPA2007US06302

PATIENT
  Age: 29 Year
  Sex: Male

DRUGS (1)
  1. TAVIST [Suspect]
     Indication: SEASONAL ALLERGY
     Dosage: 1 MG, BID, ORAL
     Route: 048
     Dates: start: 20070523, end: 20070523

REACTIONS (6)
  - DRUG HYPERSENSITIVITY [None]
  - HEADACHE [None]
  - INAPPROPRIATE SCHEDULE OF DRUG ADMINISTRATION [None]
  - PAIN IN JAW [None]
  - REACTION TO DRUG EXCIPIENTS [None]
  - SWELLING FACE [None]
